FAERS Safety Report 20616834 (Version 1)
Quarter: 2022Q1

REPORT INFORMATION
  Report Type: Spontaneous
  Country: US (occurrence: None)
  Receive Date: 20220318
  Receipt Date: 20220318
  Transmission Date: 20220424
  Serious: Yes (Hospitalization)
  Sender: FDA-Public Use
  Company Number: None

PATIENT
  Age: 74 Year
  Sex: Male
  Weight: 67.5 kg

DRUGS (16)
  1. SULFAMETHOXAZOLE\TRIMETHOPRIM [Suspect]
     Active Substance: SULFAMETHOXAZOLE\TRIMETHOPRIM
     Indication: Gastrointestinal infection
     Dosage: FREQUENCY : TWICE A DAY;?
     Route: 048
  2. C-Pap [Concomitant]
  3. ALLOPURINOL [Concomitant]
     Active Substance: ALLOPURINOL
  4. AMLODIPINE [Concomitant]
     Active Substance: AMLODIPINE BESYLATE
  5. CLOPIDOGREL [Concomitant]
     Active Substance: CLOPIDOGREL BISULFATE
  6. COMBIVENT [Concomitant]
     Active Substance: ALBUTEROL SULFATE\IPRATROPIUM BROMIDE
  7. DONEPEZIL [Concomitant]
     Active Substance: DONEPEZIL
  8. MEMANTINE [Concomitant]
     Active Substance: MEMANTINE
  9. METOPROLOL [Concomitant]
     Active Substance: METOPROLOL
  10. REPATHA [Concomitant]
     Active Substance: EVOLOCUMAB
  11. SYMBICORT [Concomitant]
     Active Substance: BUDESONIDE\FORMOTEROL FUMARATE DIHYDRATE
  12. ALTERIL [Concomitant]
  13. CRANBERRY [Concomitant]
     Active Substance: CRANBERRY
  14. DOCUSATE [Concomitant]
     Active Substance: DOCUSATE
  15. FISH OIL [Concomitant]
     Active Substance: FISH OIL
  16. PROBIOTICS NOS [Concomitant]
     Active Substance: PROBIOTICS NOS

REACTIONS (9)
  - Anaphylactic reaction [None]
  - Dyspnoea [None]
  - Dysphagia [None]
  - Wheezing [None]
  - Chest discomfort [None]
  - Aphonia [None]
  - Dysphonia [None]
  - Pharyngeal swelling [None]
  - Dysuria [None]

NARRATIVE: CASE EVENT DATE: 20220312
